FAERS Safety Report 5133005-6 (Version None)
Quarter: 2006Q4

REPORT INFORMATION
  Report Type: 
  Country: None (occurrence: None)
  Receive Date: 20061018
  Receipt Date: 20061010
  Transmission Date: 20070319
  Serious: Yes (Disabling)
  Sender: FDA-Public Use
  Company Number: 148519ISR

PATIENT
  Age: 71 Year
  Sex: Male

DRUGS (1)
  1. SIMVASTATIN [Suspect]
     Dosage: 10 MG ORAL
     Route: 048
     Dates: start: 20050816

REACTIONS (2)
  - GAIT DISTURBANCE [None]
  - PITTING OEDEMA [None]
